FAERS Safety Report 9274559 (Version 1)
Quarter: 2013Q2

REPORT INFORMATION
  Report Type: Spontaneous
  Country: CA (occurrence: CA)
  Receive Date: 20130507
  Receipt Date: 20130507
  Transmission Date: 20140414
  Serious: Yes (Other)
  Sender: FDA-Public Use
  Company Number: CA-GE HEALTHCARE MEDICAL DIAGNOSTICS-VISP-PR-1305S-0607

PATIENT
  Age: 72 Year
  Sex: Female

DRUGS (2)
  1. VISIPAQUE [Suspect]
     Indication: HAEMATURIA
     Route: 042
     Dates: start: 20130415, end: 20130415
  2. VISIPAQUE [Suspect]
     Indication: DIAGNOSTIC PROCEDURE

REACTIONS (2)
  - Feeling jittery [Recovered/Resolved]
  - Urticaria [Recovered/Resolved]
